FAERS Safety Report 5737798-6 (Version None)
Quarter: 2008Q2

REPORT INFORMATION
  Report Type: 
  Country: None (occurrence: None)
  Receive Date: 20080514
  Receipt Date: 20080509
  Transmission Date: 20081010
  Serious: Yes (Hospitalization)
  Sender: FDA-Public Use
  Company Number: US-MERCK-0805USA02021

PATIENT
  Age: 81 Year
  Sex: Female

DRUGS (10)
  1. FOSAMAX [Suspect]
     Indication: OSTEOPOROSIS
     Route: 048
  2. NEURONTIN [Concomitant]
     Route: 065
  3. COREG [Concomitant]
     Route: 065
  4. LISINOPRIL [Concomitant]
     Route: 065
  5. ZOCOR [Concomitant]
     Route: 048
  6. COUMADIN [Concomitant]
     Route: 065
  7. LANOXIN [Concomitant]
     Route: 065
  8. NAMENDA [Concomitant]
     Route: 065
  9. LASIX [Concomitant]
     Route: 065
  10. KLOR-CON [Concomitant]
     Route: 065

REACTIONS (1)
  - HEART RATE IRREGULAR [None]
